FAERS Safety Report 7491865-8 (Version None)
Quarter: 2011Q2

REPORT INFORMATION
  Report Type: 
  Country: None (occurrence: None)
  Receive Date: 20110519
  Receipt Date: 20110507
  Transmission Date: 20111010
  Serious: Yes (Other)
  Sender: FDA-Public Use
  Company Number: FR-ROCHE-777335

PATIENT
  Age: 20 Year
  Sex: Male

DRUGS (1)
  1. ACCUTANE [Suspect]
     Indication: ACNE
     Route: 065
     Dates: start: 20070101

REACTIONS (7)
  - EAR INFECTION [None]
  - PATHOLOGICAL GAMBLING [None]
  - ABDOMINAL PAIN UPPER [None]
  - ERECTILE DYSFUNCTION [None]
  - SOCIAL PROBLEM [None]
  - THINKING ABNORMAL [None]
  - APATHY [None]
